FAERS Safety Report 5507529-3 (Version None)
Quarter: 2007Q4

REPORT INFORMATION
  Report Type: 
  Country: None (occurrence: None)
  Receive Date: 20071102
  Receipt Date: 20071019
  Transmission Date: 20080405
  Serious: Yes (Death, Hospitalization)
  Sender: FDA-Public Use
  Company Number: S07-FRA-05209-01

PATIENT
  Age: 82 Year
  Sex: Male

DRUGS (1)
  1. MEMANTINE HCL [Suspect]
     Indication: DEMENTIA ALZHEIMER'S TYPE
     Dates: start: 20070901, end: 20070901

REACTIONS (2)
  - DRUG ERUPTION [None]
  - SKIN EXFOLIATION [None]
